FAERS Safety Report 22130591 (Version 1)
Quarter: 2023Q1

REPORT INFORMATION
  Report Type: Report from Study
  Country: US (occurrence: US)
  Receive Date: 20230323
  Receipt Date: 20230323
  Transmission Date: 20230418
  Serious: Yes (Hospitalization)
  Sender: FDA-Public Use
  Company Number: US-EXELIXIS-XL18423061956

PATIENT
  Age: 72 Year
  Sex: Female
  Weight: 59.1 kg

DRUGS (3)
  1. CABOZANTINIB [Suspect]
     Active Substance: CABOZANTINIB
     Indication: Soft tissue neoplasm
     Dosage: UNK
     Dates: start: 20210121, end: 202207
  2. NIVOLUMAB [Suspect]
     Active Substance: NIVOLUMAB
     Indication: Soft tissue neoplasm
     Dosage: 480 MG
     Dates: start: 20210121
  3. NIVOLUMAB [Suspect]
     Active Substance: NIVOLUMAB
     Dosage: 480 MG
     Dates: start: 20220929, end: 20220929

REACTIONS (2)
  - Ataxia [Unknown]
  - Haematoma [Unknown]

NARRATIVE: CASE EVENT DATE: 20221016
